FAERS Safety Report 6757007-9 (Version None)
Quarter: 2010Q2

REPORT INFORMATION
  Report Type: 
  Country: None (occurrence: None)
  Receive Date: 20100604
  Receipt Date: 20100527
  Transmission Date: 20101027
  Serious: Yes (Hospitalization)
  Sender: FDA-Public Use
  Company Number: DE-B.I. PHARMACEUTICALS,INC./RIDGEFIELD-2010-DE-02605DE

PATIENT
  Sex: Female

DRUGS (9)
  1. VIRAMUNE [Suspect]
     Indication: HIV INFECTION
     Dates: end: 20010417
  2. VIRAMUNE [Suspect]
     Dates: start: 20010621
  3. LAMIVUDINE (EPIVIR HBV) [Concomitant]
     Indication: HIV INFECTION
     Dates: start: 19990708, end: 20030605
  4. AZT [Concomitant]
     Indication: HIV INFECTION
     Dates: start: 19990708, end: 20030605
  5. EBV [Concomitant]
     Indication: HIV INFECTION
     Dates: start: 20030306
  6. LEVOTHYROXINE SODIUM [Concomitant]
     Dates: start: 20010508
  7. EPIVIR [Concomitant]
     Indication: HIV INFECTION
     Route: 048
     Dates: start: 20060621
  8. RETROVIR [Concomitant]
     Indication: HIV INFECTION
     Route: 048
     Dates: start: 20060621
  9. RETROVIR [Concomitant]
     Indication: PROPHYLAXIS
     Route: 042
     Dates: start: 20060621

REACTIONS (1)
  - CAESAREAN SECTION [None]
